FAERS Safety Report 8622869-7 (Version None)
Quarter: 2012Q3

REPORT INFORMATION
  Report Type: 
  Country: None (occurrence: None)
  Receive Date: 20120827
  Receipt Date: 20120820
  Transmission Date: 20120928
  Serious: Yes (Other)
  Sender: FDA-Public Use
  Company Number: PHHY2012SE071909

PATIENT

DRUGS (1)
  1. TOBI [Suspect]

REACTIONS (3)
  - COUGH [None]
  - HAEMOPTYSIS [None]
  - VOMITING [None]
